FAERS Safety Report 6925452-4 (Version None)
Quarter: 2010Q3

REPORT INFORMATION
  Report Type: 
  Country: None (occurrence: None)
  Receive Date: 20100816
  Receipt Date: 20100806
  Transmission Date: 20110219
  Serious: Yes (Other)
  Sender: FDA-Public Use
  Company Number: IT-ROCHE-713419

PATIENT
  Sex: Female

DRUGS (14)
  1. AVASTIN [Suspect]
     Indication: HEPATIC NEOPLASM MALIGNANT
     Dosage: FREQUENCY REPORTED AS CYCLES.
     Route: 042
     Dates: start: 20090918, end: 20091127
  2. AVASTIN [Suspect]
     Dosage: DOSE REDUCED BY 25%.
     Route: 042
  3. AVASTIN [Suspect]
     Dosage: FULL DOSES RESTARTED.
     Route: 042
     Dates: start: 20100105, end: 20100225
  4. CAMPTOSAR [Suspect]
     Indication: HEPATIC NEOPLASM MALIGNANT
     Dosage: FREQUENCY REPORTED AS CYCLES.
     Route: 042
     Dates: start: 20090918, end: 20091127
  5. CAMPTOSAR [Suspect]
     Dosage: DOSE REDUCED BY 25%.
     Route: 042
  6. CAMPTOSAR [Suspect]
     Dosage: FULL DOSES RESTARTED.
     Route: 042
     Dates: start: 20100105, end: 20100225
  7. LEDERFOLIN (CALCIUM LEVOFOLINATE) [Suspect]
     Indication: HEPATIC NEOPLASM MALIGNANT
     Dosage: FREQUENCY REPORTED AS CYCLES.
     Route: 042
     Dates: start: 20090918, end: 20091127
  8. LEDERFOLIN (CALCIUM LEVOFOLINATE) [Suspect]
     Dosage: DOSE REDUCED BY 25%.
     Route: 042
  9. LEDERFOLIN (CALCIUM LEVOFOLINATE) [Suspect]
     Dosage: FULL DOSES RESTARTED.
     Route: 042
     Dates: start: 20100105, end: 20100225
  10. FLUOROURACIL [Suspect]
     Indication: HEPATIC NEOPLASM MALIGNANT
     Dosage: FREQUENCY REPORTED AS CYCLES.
     Route: 042
     Dates: start: 20090918
  11. FLUOROURACIL [Suspect]
     Dosage: FREQUENCY REPORTED AS CYCLES.
     Route: 042
     Dates: end: 20091127
  12. FLUOROURACIL [Suspect]
     Dosage: DOSE REDUCED BY 25%.
     Route: 042
  13. FLUOROURACIL [Suspect]
     Dosage: FULL DOSES RESTARTED.
     Route: 042
     Dates: start: 20100105
  14. FLUOROURACIL [Suspect]
     Dosage: FULL DOSES RESTARTED.
     Route: 042
     Dates: end: 20100225

REACTIONS (3)
  - DEHYDRATION [None]
  - DYSURIA [None]
  - PYREXIA [None]
